FAERS Safety Report 16601497 (Version 1)
Quarter: 2019Q3

REPORT INFORMATION
  Report Type: Spontaneous
  Country: US (occurrence: US)
  Receive Date: 20190719
  Receipt Date: 20190719
  Transmission Date: 20191004
  Serious: Yes (Other)
  Sender: FDA-Public Use
  Company Number: PHHY2019US163780

PATIENT
  Age: 28 Year
  Sex: Male

DRUGS (1)
  1. TRIAMCINOLONE [Suspect]
     Active Substance: TRIAMCINOLONE
     Indication: EYE INFLAMMATION
     Route: 031

REACTIONS (6)
  - Serous retinal detachment [Recovered/Resolved]
  - Retinal haemorrhage [Recovered/Resolved]
  - Visual impairment [Recovering/Resolving]
  - Papilloedema [Unknown]
  - Open globe injury [Recovering/Resolving]
  - Vitreous haemorrhage [Unknown]
